FAERS Safety Report 9345321 (Version 3)
Quarter: 2014Q1

REPORT INFORMATION
  Report Type: Spontaneous
  Country: US (occurrence: US)
  Receive Date: 20130613
  Receipt Date: 20140214
  Transmission Date: 20141002
  Serious: Yes (Death, Hospitalization)
  Sender: FDA-Public Use
  Company Number: US-B.I. PHARMACEUTICALS,INC./RIDGEFIELD-2013-BI-16583BP

PATIENT
  Age: 80 Year
  Sex: Female
  Weight: 92.25 kg

DRUGS (17)
  1. PRADAXA [Suspect]
     Indication: CEREBROVASCULAR ACCIDENT PROPHYLAXIS
     Dosage: 300 MG
     Route: 048
     Dates: start: 20110404, end: 20120804
  2. PRADAXA [Suspect]
     Indication: THROMBOSIS PROPHYLAXIS
  3. ATENOLOL [Concomitant]
  4. VYTORIN [Concomitant]
     Route: 048
  5. GLUCOPHAGE [Concomitant]
     Dosage: 500 MG
     Route: 048
  6. POTASSIUM [Concomitant]
  7. ASPIRIN [Concomitant]
     Dosage: 81 MG
     Route: 048
  8. AVAPRO [Concomitant]
  9. HYDROCHLOROTHIAZIDE [Concomitant]
     Dosage: 12.5 MG
     Route: 048
  10. COZAAR [Concomitant]
     Dosage: 50 MG
     Route: 048
  11. CORGARD [Concomitant]
     Dosage: 20 MG
     Route: 048
  12. CARDIZEM [Concomitant]
     Route: 048
  13. VITAMINS [Concomitant]
  14. IRON [Concomitant]
     Dosage: 66 MG
     Route: 048
  15. VITAMIN D3 [Concomitant]
     Dosage: 2000 U
     Route: 048
  16. SEA-OMEGA [Concomitant]
     Route: 048
  17. POTASSIUM GLUCONATE [Concomitant]
     Route: 048

REACTIONS (4)
  - Gastrointestinal haemorrhage [Fatal]
  - Coagulopathy [Fatal]
  - Coagulopathy [Fatal]
  - Peritonitis [Fatal]
